FAERS Safety Report 14363643 (Version 2)
Quarter: 2018Q1

REPORT INFORMATION
  Report Type: Spontaneous
  Country: GB (occurrence: GB)
  Receive Date: 20180108
  Receipt Date: 20180306
  Transmission Date: 20180509
  Serious: Yes (Disabling, Other)
  Sender: FDA-Public Use
  Company Number: PHHY2017GB173868

PATIENT
  Age: 39 Year
  Sex: Male
  Weight: 87.4 kg

DRUGS (1)
  1. COSENTYX [Suspect]
     Active Substance: SECUKINUMAB
     Indication: PRODUCT USED FOR UNKNOWN INDICATION
     Dosage: 300 MG, QW
     Route: 058
     Dates: start: 201605, end: 201701

REACTIONS (5)
  - Vertigo positional [Recovered/Resolved]
  - Drug ineffective [Recovered/Resolved with Sequelae]
  - Blister [Recovered/Resolved]
  - Condition aggravated [Unknown]
  - Genital blister [Recovered/Resolved]

NARRATIVE: CASE EVENT DATE: 201605
